FAERS Safety Report 6619733-1 (Version None)
Quarter: 2010Q1

REPORT INFORMATION
  Report Type: 
  Country: None (occurrence: None)
  Receive Date: 20100309
  Receipt Date: 20100225
  Transmission Date: 20100710
  Serious: Yes (Hospitalization)
  Sender: FDA-Public Use
  Company Number: PHHO2010US02828

PATIENT
  Sex: Female
  Weight: 98 kg

DRUGS (4)
  1. CERTICAN [Suspect]
     Indication: ORGAN TRANSPLANT
     Dosage: 5 MG, QD
     Route: 048
     Dates: start: 20070402
  2. CERTICAN [Suspect]
     Dosage: 2.5 MG, QD
     Route: 048
  3. NEORAL [Concomitant]
     Dosage: 75 MG, BID
     Dates: start: 20070401
  4. NEORAL [Concomitant]
     Dosage: 50 MG, BID
     Dates: start: 20070401

REACTIONS (17)
  - ABDOMINAL PAIN [None]
  - ACUTE MYOCARDIAL INFARCTION [None]
  - ALANINE AMINOTRANSFERASE INCREASED [None]
  - ASPARTATE AMINOTRANSFERASE INCREASED [None]
  - BLOOD CREATINE PHOSPHOKINASE INCREASED [None]
  - BLOOD CREATININE INCREASED [None]
  - BLOOD UREA INCREASED [None]
  - BRAIN NATRIURETIC PEPTIDE INCREASED [None]
  - CARDIOMYOPATHY [None]
  - CENTRAL VENOUS CATHETERISATION [None]
  - CONCOMITANT DISEASE PROGRESSION [None]
  - CORONARY ARTERY DISEASE [None]
  - DYSPNOEA [None]
  - DYSPNOEA EXERTIONAL [None]
  - LISTLESS [None]
  - RENAL FAILURE ACUTE [None]
  - TROPONIN INCREASED [None]
